FAERS Safety Report 4449112-7 (Version None)
Quarter: 2004Q3

REPORT INFORMATION
  Report Type: 
  Country: None (occurrence: None)
  Receive Date: 20040913
  Receipt Date: 20040826
  Transmission Date: 20050211
  Serious: Yes (Hospitalization)
  Sender: FDA-Public Use
  Company Number: 203677

PATIENT
  Age: 52 Year
  Sex: Female
  Weight: 63.9572 kg

DRUGS (6)
  1. AVONEX [Suspect]
     Indication: MULTIPLE SCLEROSIS
     Dates: start: 20000101
  2. AVONEX [Suspect]
     Indication: MULTIPLE SCLEROSIS
     Dosage: 30 MCG QW IM
     Route: 030
     Dates: start: 20000101
  3. PHENERGAN ^SPECIA^ [Concomitant]
  4. SYNTHROID [Concomitant]
  5. ZANAFLEX [Concomitant]
  6. PREVACID [Concomitant]

REACTIONS (17)
  - AMNESIA [None]
  - BALANCE DISORDER [None]
  - CONTUSION [None]
  - CONVULSION [None]
  - DEPRESSION [None]
  - DYSPNOEA [None]
  - FALL [None]
  - HEART RATE INCREASED [None]
  - HIP FRACTURE [None]
  - HYPERTENSION [None]
  - INFLUENZA LIKE ILLNESS [None]
  - LACERATION [None]
  - NEPHROLITHIASIS [None]
  - PELVIC FRACTURE [None]
  - RIB FRACTURE [None]
  - SPINAL FRACTURE [None]
  - WEIGHT INCREASED [None]
